FAERS Safety Report 17823628 (Version 1)
Quarter: 2020Q2

REPORT INFORMATION
  Report Type: Spontaneous
  Country: US (occurrence: US)
  Receive Date: 20200525
  Receipt Date: 20200525
  Transmission Date: 20200714
  Serious: Yes (Other)
  Sender: FDA-Public Use
  Company Number: None

PATIENT
  Age: 62 Year
  Sex: Female

DRUGS (9)
  1. CARAFATE 1GM [Concomitant]
  2. SUTENT [Suspect]
     Active Substance: SUNITINIB MALATE
     Indication: RENAL CANCER
     Route: 048
     Dates: start: 20200421, end: 20200515
  3. ASPIRIN 81MG [Concomitant]
     Active Substance: ASPIRIN
  4. LEXAPRO [Concomitant]
     Active Substance: ESCITALOPRAM OXALATE
  5. LINZESS 145MG [Concomitant]
  6. DULOXETINE 60MG [Concomitant]
     Active Substance: DULOXETINE
  7. OXYCODONE/APA 5/325MG [Concomitant]
  8. METHOTREXATE 2.5MG [Concomitant]
     Active Substance: METHOTREXATE
     Dates: start: 20181031
  9. ATORVASTATIN 40MG [Concomitant]
     Active Substance: ATORVASTATIN

REACTIONS (1)
  - White blood cell count decreased [None]

NARRATIVE: CASE EVENT DATE: 20200519
